FAERS Safety Report 17214483 (Version 1)
Quarter: 2019Q4

REPORT INFORMATION
  Report Type: Spontaneous
  Country: US (occurrence: US)
  Receive Date: 20191206
  Receipt Date: 20191206
  Transmission Date: 20200122
  Serious: Yes (Other)
  Sender: FDA-Public Use
  Company Number: None

PATIENT
  Age: 58 Year
  Sex: Female
  Weight: 55.6 kg

DRUGS (1)
  1. LEVALBUTEROL. [Suspect]
     Active Substance: LEVALBUTEROL
     Indication: ASTHMA
     Dosage: ?          OTHER FREQUENCY:Q4HRS ;OTHER ROUTE:NEBULIZED?
     Dates: start: 20190903, end: 20191002

REACTIONS (3)
  - Chest discomfort [None]
  - Chest pain [None]
  - Burning sensation [None]
